FAERS Safety Report 8443098-6 (Version None)
Quarter: 2012Q2

REPORT INFORMATION
  Report Type: 
  Country: None (occurrence: None)
  Receive Date: 20120615
  Receipt Date: 20120605
  Transmission Date: 20120825
  Serious: Yes (Disabling)
  Sender: FDA-Public Use
  Company Number: UA-BAXTER-2012BAX007583

PATIENT
  Sex: Male
  Weight: 55 kg

DRUGS (216)
  1. FEIBA [Suspect]
     Route: 042
     Dates: start: 20110323, end: 20110323
  2. FEIBA [Suspect]
     Route: 042
     Dates: start: 20110524, end: 20110524
  3. FEIBA [Suspect]
     Route: 042
     Dates: start: 20110526, end: 20110526
  4. FEIBA [Suspect]
     Route: 042
     Dates: start: 20110530, end: 20110530
  5. FEIBA [Suspect]
     Route: 042
     Dates: start: 20110605, end: 20110605
  6. FEIBA [Suspect]
     Route: 042
     Dates: start: 20110615, end: 20110615
  7. FEIBA [Suspect]
     Route: 042
     Dates: start: 20110703, end: 20110703
  8. FEIBA [Suspect]
     Route: 042
     Dates: start: 20110705, end: 20110705
  9. FEIBA [Suspect]
     Route: 042
     Dates: start: 20110721, end: 20110721
  10. FEIBA [Suspect]
     Route: 042
     Dates: start: 20110731, end: 20110731
  11. FEIBA [Suspect]
     Route: 042
     Dates: start: 20110804, end: 20110804
  12. FEIBA [Suspect]
     Route: 042
     Dates: start: 20110907, end: 20110907
  13. FEIBA [Suspect]
     Route: 042
     Dates: start: 20111002, end: 20111002
  14. FEIBA [Suspect]
     Route: 042
     Dates: start: 20111010, end: 20111010
  15. FEIBA [Suspect]
     Route: 042
     Dates: start: 20111109, end: 20111109
  16. FEIBA [Suspect]
     Route: 042
     Dates: start: 20111125, end: 20111125
  17. FEIBA [Suspect]
     Route: 042
     Dates: start: 20111209, end: 20111209
  18. FEIBA [Suspect]
     Route: 042
     Dates: start: 20111217, end: 20111217
  19. FEIBA [Suspect]
     Route: 042
     Dates: start: 20111223, end: 20111223
  20. FEIBA [Suspect]
     Route: 042
     Dates: start: 20120102, end: 20120102
  21. FEIBA [Suspect]
     Route: 042
     Dates: start: 20120106, end: 20120106
  22. FEIBA [Suspect]
     Route: 042
     Dates: start: 20120114, end: 20120114
  23. FEIBA [Suspect]
     Route: 042
     Dates: start: 20120120, end: 20120120
  24. FEIBA [Suspect]
     Route: 042
     Dates: start: 20120209, end: 20120209
  25. FEIBA [Suspect]
     Route: 042
     Dates: start: 20110628, end: 20110628
  26. FEIBA [Suspect]
     Route: 042
     Dates: start: 20110811, end: 20110811
  27. FEIBA [Suspect]
     Route: 042
     Dates: start: 20110930, end: 20110930
  28. FEIBA [Suspect]
     Route: 042
     Dates: start: 20120310, end: 20120310
  29. FEIBA [Suspect]
     Route: 042
     Dates: start: 20110408, end: 20110408
  30. FEIBA [Suspect]
     Route: 042
     Dates: start: 20110410, end: 20110410
  31. FEIBA [Suspect]
     Route: 042
     Dates: start: 20110418, end: 20110418
  32. FEIBA [Suspect]
     Route: 042
     Dates: start: 20110424, end: 20110424
  33. FEIBA [Suspect]
     Route: 042
     Dates: start: 20110504, end: 20110504
  34. FEIBA [Suspect]
     Route: 042
     Dates: start: 20110508, end: 20110508
  35. FEIBA [Suspect]
     Route: 042
     Dates: start: 20110626, end: 20110626
  36. FEIBA [Suspect]
     Route: 042
     Dates: start: 20110711, end: 20110711
  37. FEIBA [Suspect]
     Route: 042
     Dates: start: 20110713, end: 20110713
  38. FEIBA [Suspect]
     Route: 042
     Dates: start: 20110822, end: 20110822
  39. FEIBA [Suspect]
     Route: 042
     Dates: start: 20110911, end: 20110911
  40. FEIBA [Suspect]
     Route: 042
     Dates: start: 20110915, end: 20110915
  41. FEIBA [Suspect]
     Route: 042
     Dates: start: 20110917, end: 20110917
  42. FEIBA [Suspect]
     Route: 042
     Dates: start: 20111008, end: 20111008
  43. FEIBA [Suspect]
     Route: 042
     Dates: start: 20111012, end: 20111012
  44. FEIBA [Suspect]
     Route: 042
     Dates: start: 20111022, end: 20111022
  45. FEIBA [Suspect]
     Route: 042
     Dates: start: 20111219, end: 20111219
  46. FEIBA [Suspect]
     Route: 042
     Dates: start: 20120104, end: 20120104
  47. FEIBA [Suspect]
     Route: 042
     Dates: start: 20120228, end: 20120228
  48. FEIBA [Suspect]
     Route: 042
     Dates: start: 20120303, end: 20120303
  49. FEIBA [Suspect]
     Route: 042
     Dates: start: 20120305, end: 20120305
  50. FEIBA [Suspect]
     Route: 042
     Dates: start: 20110320, end: 20110320
  51. FEIBA [Suspect]
     Route: 042
     Dates: start: 20110811, end: 20110811
  52. FEIBA [Suspect]
     Route: 042
     Dates: start: 20120217, end: 20120217
  53. FEIBA [Suspect]
     Route: 042
     Dates: start: 20120218, end: 20120218
  54. FEIBA [Suspect]
     Route: 042
     Dates: start: 20110315, end: 20110315
  55. FEIBA [Suspect]
     Route: 042
     Dates: start: 20110325, end: 20110325
  56. FEIBA [Suspect]
     Route: 042
     Dates: start: 20110416, end: 20110416
  57. FEIBA [Suspect]
     Route: 042
     Dates: start: 20110420, end: 20110420
  58. FEIBA [Suspect]
     Route: 042
     Dates: start: 20110512, end: 20110512
  59. FEIBA [Suspect]
     Route: 042
     Dates: start: 20110518, end: 20110518
  60. FEIBA [Suspect]
     Route: 042
     Dates: start: 20110520, end: 20110520
  61. FEIBA [Suspect]
     Route: 042
     Dates: start: 20110601, end: 20110601
  62. FEIBA [Suspect]
     Route: 042
     Dates: start: 20110603, end: 20110603
  63. FEIBA [Suspect]
     Route: 042
     Dates: start: 20110719, end: 20110719
  64. FEIBA [Suspect]
     Route: 042
     Dates: start: 20110725, end: 20110725
  65. FEIBA [Suspect]
     Route: 042
     Dates: start: 20110810, end: 20110810
  66. FEIBA [Suspect]
     Route: 042
     Dates: start: 20110818, end: 20110818
  67. FEIBA [Suspect]
     Route: 042
     Dates: start: 20110828, end: 20110828
  68. FEIBA [Suspect]
     Route: 042
     Dates: start: 20110913, end: 20110913
  69. FEIBA [Suspect]
     Route: 042
     Dates: start: 20110921, end: 20110921
  70. FEIBA [Suspect]
     Route: 042
     Dates: start: 20110923, end: 20110923
  71. FEIBA [Suspect]
     Route: 042
     Dates: start: 20111225, end: 20111225
  72. FEIBA [Suspect]
     Route: 042
     Dates: start: 20120122, end: 20120122
  73. FEIBA [Suspect]
     Route: 042
     Dates: start: 20120226, end: 20120226
  74. FEIBA [Suspect]
     Route: 042
     Dates: start: 20110929, end: 20110929
  75. FEIBA [Suspect]
     Route: 042
     Dates: start: 20120218, end: 20120218
  76. FEIBA [Suspect]
     Route: 042
     Dates: start: 20110319, end: 20110319
  77. FEIBA [Suspect]
     Route: 042
     Dates: start: 20110329, end: 20110329
  78. FEIBA [Suspect]
     Route: 042
     Dates: start: 20110404, end: 20110404
  79. FEIBA [Suspect]
     Route: 042
     Dates: start: 20110424, end: 20110424
  80. FEIBA [Suspect]
     Route: 042
     Dates: start: 20110428, end: 20110428
  81. FEIBA [Suspect]
     Route: 042
     Dates: start: 20110430, end: 20110430
  82. FEIBA [Suspect]
     Route: 042
     Dates: start: 20110607, end: 20110607
  83. FEIBA [Suspect]
     Route: 042
     Dates: start: 20110723, end: 20110723
  84. FEIBA [Suspect]
     Route: 042
     Dates: start: 20110729, end: 20110729
  85. FEIBA [Suspect]
     Route: 042
     Dates: start: 20110802, end: 20110802
  86. FEIBA [Suspect]
     Route: 042
     Dates: start: 20110808, end: 20110808
  87. FEIBA [Suspect]
     Route: 042
     Dates: start: 20110826, end: 20110826
  88. FEIBA [Suspect]
     Route: 042
     Dates: start: 20110830, end: 20110830
  89. FEIBA [Suspect]
     Route: 042
     Dates: start: 20110901, end: 20110901
  90. FEIBA [Suspect]
     Route: 042
     Dates: start: 20110905, end: 20110905
  91. FEIBA [Suspect]
     Route: 042
     Dates: start: 20110919, end: 20110919
  92. FEIBA [Suspect]
     Route: 042
     Dates: start: 20110925, end: 20110925
  93. FEIBA [Suspect]
     Route: 042
     Dates: start: 20110927, end: 20110927
  94. FEIBA [Suspect]
     Route: 042
     Dates: start: 20111006, end: 20111006
  95. FEIBA [Suspect]
     Route: 042
     Dates: start: 20111014, end: 20111014
  96. FEIBA [Suspect]
     Route: 042
     Dates: start: 20111026, end: 20111026
  97. FEIBA [Suspect]
     Route: 042
     Dates: start: 20111105, end: 20111105
  98. FEIBA [Suspect]
     Route: 042
     Dates: start: 20120110, end: 20120110
  99. FEIBA [Suspect]
     Route: 042
     Dates: start: 20120207, end: 20120207
  100. FEIBA [Suspect]
     Route: 042
     Dates: start: 20110629, end: 20110629
  101. FEIBA [Suspect]
     Route: 042
     Dates: start: 20110810, end: 20110810
  102. FEIBA [Suspect]
     Route: 042
     Dates: start: 20120219, end: 20120219
  103. FEIBA [Suspect]
     Route: 042
     Dates: start: 20120309, end: 20120309
  104. FEIBA [Suspect]
     Route: 042
     Dates: start: 20120309, end: 20120309
  105. FEIBA [Suspect]
     Route: 042
     Dates: start: 20110422, end: 20110422
  106. FEIBA [Suspect]
     Route: 042
     Dates: start: 20110510, end: 20110510
  107. FEIBA [Suspect]
     Route: 042
     Dates: start: 20110514, end: 20110514
  108. FEIBA [Suspect]
     Route: 042
     Dates: start: 20110516, end: 20110516
  109. FEIBA [Suspect]
     Route: 042
     Dates: start: 20110611, end: 20110611
  110. FEIBA [Suspect]
     Route: 042
     Dates: start: 20110816, end: 20110816
  111. FEIBA [Suspect]
     Route: 042
     Dates: start: 20110820, end: 20110820
  112. FEIBA [Suspect]
     Route: 042
     Dates: start: 20110824, end: 20110824
  113. FEIBA [Suspect]
     Route: 042
     Dates: start: 20111020, end: 20111020
  114. FEIBA [Suspect]
     Route: 042
     Dates: start: 20111103, end: 20111103
  115. FEIBA [Suspect]
     Route: 042
     Dates: start: 20111113, end: 20111113
  116. FEIBA [Suspect]
     Route: 042
     Dates: start: 20111127, end: 20111127
  117. FEIBA [Suspect]
     Route: 042
     Dates: start: 20111201, end: 20111201
  118. FEIBA [Suspect]
     Route: 042
     Dates: start: 20111203, end: 20111203
  119. FEIBA [Suspect]
     Route: 042
     Dates: start: 20111205, end: 20111205
  120. FEIBA [Suspect]
     Route: 042
     Dates: start: 20111211, end: 20111211
  121. FEIBA [Suspect]
     Route: 042
     Dates: start: 20120108, end: 20120108
  122. FEIBA [Suspect]
     Route: 042
     Dates: start: 20120116, end: 20120116
  123. FEIBA [Suspect]
     Route: 042
     Dates: start: 20120217, end: 20120217
  124. FEIBA [Suspect]
     Route: 042
     Dates: start: 20120224, end: 20120224
  125. FEIBA [Suspect]
     Route: 042
     Dates: start: 20120315, end: 20120315
  126. FEIBA [Suspect]
     Route: 042
     Dates: start: 20110624, end: 20110624
  127. FEIBA [Suspect]
     Route: 042
     Dates: start: 20110626, end: 20110626
  128. FEIBA [Suspect]
     Route: 042
     Dates: start: 20110321, end: 20110321
  129. FEIBA [Suspect]
     Route: 042
     Dates: start: 20110929, end: 20110929
  130. FEIBA [Suspect]
     Route: 042
     Dates: start: 20120311, end: 20120311
  131. FEIBA [Suspect]
     Route: 042
     Dates: start: 20120215, end: 20120215
  132. FEIBA [Suspect]
     Route: 042
     Dates: start: 20110406, end: 20110406
  133. FEIBA [Suspect]
     Route: 042
     Dates: start: 20110613, end: 20110613
  134. FEIBA [Suspect]
     Route: 042
     Dates: start: 20110623, end: 20110623
  135. FEIBA [Suspect]
     Route: 042
     Dates: start: 20110806, end: 20110806
  136. FEIBA [Suspect]
     Route: 042
     Dates: start: 20110814, end: 20110814
  137. FEIBA [Suspect]
     Route: 042
     Dates: start: 20111018, end: 20111018
  138. FEIBA [Suspect]
     Route: 042
     Dates: start: 20111030, end: 20111030
  139. FEIBA [Suspect]
     Route: 042
     Dates: start: 20111123, end: 20111123
  140. FEIBA [Suspect]
     Route: 042
     Dates: start: 20111213, end: 20111213
  141. FEIBA [Suspect]
     Route: 042
     Dates: start: 20111221, end: 20111221
  142. FEIBA [Suspect]
     Route: 042
     Dates: start: 20120112, end: 20120112
  143. FEIBA [Suspect]
     Route: 042
     Dates: start: 20120124, end: 20120124
  144. FEIBA [Suspect]
     Route: 042
     Dates: start: 20120128, end: 20120128
  145. FEIBA [Suspect]
     Route: 042
     Dates: start: 20120205, end: 20120205
  146. FEIBA [Suspect]
     Route: 042
     Dates: start: 20120213, end: 20120213
  147. FEIBA [Suspect]
     Route: 042
     Dates: start: 20120301, end: 20120301
  148. FEIBA [Suspect]
     Route: 042
     Dates: start: 20120313, end: 20120313
  149. FEIBA [Suspect]
     Route: 042
     Dates: start: 20110627, end: 20110627
  150. FEIBA [Suspect]
     Route: 042
     Dates: start: 20110629, end: 20110629
  151. FEIBA [Suspect]
     Route: 042
     Dates: start: 20110812, end: 20110812
  152. FEIBA [Suspect]
     Route: 042
     Dates: start: 20120219, end: 20120219
  153. FEIBA [Suspect]
     Route: 042
     Dates: start: 20120220, end: 20120220
  154. FEIBA [Suspect]
     Route: 042
     Dates: start: 20120306, end: 20120319
  155. FEIBA [Suspect]
     Indication: FACTOR VIII INHIBITION
     Route: 042
     Dates: start: 20110317, end: 20110317
  156. FEIBA [Suspect]
     Route: 042
     Dates: start: 20110331, end: 20110331
  157. FEIBA [Suspect]
     Route: 042
     Dates: start: 20110426, end: 20110426
  158. FEIBA [Suspect]
     Route: 042
     Dates: start: 20110506, end: 20110506
  159. FEIBA [Suspect]
     Route: 042
     Dates: start: 20110522, end: 20110522
  160. FEIBA [Suspect]
     Route: 042
     Dates: start: 20110528, end: 20110528
  161. FEIBA [Suspect]
     Route: 042
     Dates: start: 20110701, end: 20110701
  162. FEIBA [Suspect]
     Route: 042
     Dates: start: 20110707, end: 20110707
  163. FEIBA [Suspect]
     Route: 042
     Dates: start: 20110709, end: 20110709
  164. FEIBA [Suspect]
     Route: 042
     Dates: start: 20110715, end: 20110715
  165. FEIBA [Suspect]
     Route: 042
     Dates: start: 20110717, end: 20110717
  166. FEIBA [Suspect]
     Route: 042
     Dates: start: 20110903, end: 20110903
  167. FEIBA [Suspect]
     Route: 042
     Dates: start: 20110909, end: 20110909
  168. FEIBA [Suspect]
     Route: 042
     Dates: start: 20111016, end: 20111016
  169. FEIBA [Suspect]
     Route: 042
     Dates: start: 20111024, end: 20111024
  170. FEIBA [Suspect]
     Route: 042
     Dates: start: 20111028, end: 20111028
  171. FEIBA [Suspect]
     Route: 042
     Dates: start: 20111101, end: 20111101
  172. FEIBA [Suspect]
     Route: 042
     Dates: start: 20111107, end: 20111107
  173. FEIBA [Suspect]
     Route: 042
     Dates: start: 20111111, end: 20111111
  174. FEIBA [Suspect]
     Route: 042
     Dates: start: 20111117, end: 20111117
  175. FEIBA [Suspect]
     Route: 042
     Dates: start: 20111119, end: 20111119
  176. FEIBA [Suspect]
     Route: 042
     Dates: start: 20111121, end: 20111121
  177. FEIBA [Suspect]
     Route: 042
     Dates: start: 20111215, end: 20111215
  178. FEIBA [Suspect]
     Route: 042
     Dates: start: 20120118, end: 20120118
  179. FEIBA [Suspect]
     Route: 042
     Dates: start: 20120130, end: 20120130
  180. FEIBA [Suspect]
     Route: 042
     Dates: start: 20120203, end: 20120203
  181. FEIBA [Suspect]
     Route: 042
     Dates: start: 20120317, end: 20120317
  182. FEIBA [Suspect]
     Route: 042
     Dates: start: 20120319, end: 20120319
  183. FEIBA [Suspect]
     Route: 042
     Dates: start: 20110624, end: 20110624
  184. FEIBA [Suspect]
     Route: 042
     Dates: start: 20110628, end: 20110628
  185. FEIBA [Suspect]
     Route: 042
     Dates: start: 20110812, end: 20110812
  186. FEIBA [Suspect]
     Route: 042
     Dates: start: 20120307, end: 20120307
  187. FEIBA [Suspect]
     Route: 042
     Dates: start: 20120307, end: 20120307
  188. FEIBA [Suspect]
     Route: 042
     Dates: start: 20120308, end: 20120308
  189. FEIBA [Suspect]
     Route: 042
     Dates: start: 20120308, end: 20120308
  190. FEIBA [Suspect]
     Route: 042
     Dates: start: 20120311, end: 20120311
  191. FEIBA [Suspect]
     Route: 042
     Dates: start: 20120319, end: 20120319
  192. FEIBA [Suspect]
     Route: 042
     Dates: start: 20110327, end: 20110327
  193. FEIBA [Suspect]
     Route: 042
     Dates: start: 20110402, end: 20110402
  194. FEIBA [Suspect]
     Route: 042
     Dates: start: 20110412, end: 20110412
  195. FEIBA [Suspect]
     Route: 042
     Dates: start: 20110414, end: 20110414
  196. FEIBA [Suspect]
     Route: 042
     Dates: start: 20110502, end: 20110502
  197. FEIBA [Suspect]
     Route: 042
     Dates: start: 20110609, end: 20110609
  198. FEIBA [Suspect]
     Route: 042
     Dates: start: 20110617, end: 20110617
  199. FEIBA [Suspect]
     Route: 042
     Dates: start: 20110619, end: 20110619
  200. FEIBA [Suspect]
     Route: 042
     Dates: start: 20110621, end: 20110621
  201. FEIBA [Suspect]
     Route: 042
     Dates: start: 20110727, end: 20110727
  202. FEIBA [Suspect]
     Route: 042
     Dates: start: 20111004, end: 20111004
  203. FEIBA [Suspect]
     Route: 042
     Dates: start: 20111115, end: 20111115
  204. FEIBA [Suspect]
     Route: 042
     Dates: start: 20111129, end: 20111129
  205. FEIBA [Suspect]
     Route: 042
     Dates: start: 20111207, end: 20111207
  206. FEIBA [Suspect]
     Route: 042
     Dates: start: 20111227, end: 20111227
  207. FEIBA [Suspect]
     Route: 042
     Dates: start: 20111229, end: 20111229
  208. FEIBA [Suspect]
     Route: 042
     Dates: start: 20111231, end: 20111231
  209. FEIBA [Suspect]
     Route: 042
     Dates: start: 20120126, end: 20120126
  210. FEIBA [Suspect]
     Route: 042
     Dates: start: 20120201, end: 20120201
  211. FEIBA [Suspect]
     Route: 042
     Dates: start: 20120211, end: 20120211
  212. FEIBA [Suspect]
     Route: 042
     Dates: start: 20120222, end: 20120222
  213. FEIBA [Suspect]
     Route: 042
     Dates: start: 20110627, end: 20110627
  214. FEIBA [Suspect]
     Route: 042
     Dates: start: 20120220, end: 20120220
  215. FEIBA [Suspect]
     Route: 042
     Dates: start: 20120307, end: 20120307
  216. FEIBA [Suspect]
     Route: 042
     Dates: start: 20120310, end: 20120310

REACTIONS (1)
  - HEPATITIS B SURFACE ANTIBODY POSITIVE [None]
